FAERS Safety Report 4631519-6 (Version None)
Quarter: 2005Q2

REPORT INFORMATION
  Report Type: 
  Country: None (occurrence: None)
  Receive Date: 20050405
  Receipt Date: 20050405
  Transmission Date: 20051028
  Serious: No
  Sender: FDA-Public Use
  Company Number: None

PATIENT

DRUGS (2)
  1. NOVOLIN 70/30 [Suspect]
     Dosage: INJECTABLE
  2. NOVOLOG MIX 70/30 [Suspect]

REACTIONS (1)
  - MEDICATION ERROR [None]
